FAERS Safety Report 14950644 (Version 1)
Quarter: 2018Q2

REPORT INFORMATION
  Report Type: Spontaneous
  Country: SK (occurrence: SK)
  Receive Date: 20180530
  Receipt Date: 20180530
  Transmission Date: 20180711
  Serious: Yes (Hospitalization)
  Sender: FDA-Public Use
  Company Number: SK-MERCK KGAA-2048651

PATIENT
  Age: 67 Year
  Sex: Male
  Weight: 77 kg

DRUGS (6)
  1. NOVOTHYROX [Suspect]
     Active Substance: LEVOTHYROXINE SODIUM
     Indication: HYPOTHYROIDISM
  2. STILNOX [Concomitant]
     Active Substance: ZOLPIDEM TARTRATE
  3. MILURIT [Concomitant]
     Active Substance: ALLOPURINOL
  4. AMLODIPINE BESILATE [Concomitant]
     Active Substance: AMLODIPINE BESYLATE
  5. TAMSULOSIN ACTAVIS [Concomitant]
  6. WARFARIN [Concomitant]
     Active Substance: WARFARIN

REACTIONS (4)
  - Abdominal pain [Recovered/Resolved]
  - Weight decreased [Recovered/Resolved]
  - Decreased appetite [Recovered/Resolved]
  - Diarrhoea [Recovered/Resolved]

NARRATIVE: CASE EVENT DATE: 20180328
